FAERS Safety Report 9676290 (Version 1)
Quarter: 2013Q4

REPORT INFORMATION
  Report Type: Report from Study
  Country: US (occurrence: US)
  Receive Date: 20131107
  Receipt Date: 20131107
  Transmission Date: 20140711
  Serious: Yes (Hospitalization)
  Sender: FDA-Public Use
  Company Number: US-ABBVIE-13P-163-1165666-00

PATIENT
  Age: 43 Year
  Sex: Female
  Weight: 88.53 kg

DRUGS (14)
  1. HUMIRA [Suspect]
     Indication: CROHN^S DISEASE
     Dates: start: 201303, end: 20131013
  2. METFORMIN [Concomitant]
     Indication: DIABETES MELLITUS
  3. GLUCOTROL [Concomitant]
     Indication: DIABETES MELLITUS
  4. MERCAPTOPURINE [Concomitant]
     Indication: CROHN^S DISEASE
  5. HYDROCHLOROTHIAZIDE [Concomitant]
     Indication: HYPERTENSION
  6. QVAR [Concomitant]
     Indication: ASTHMA
  7. SPIRIVA [Concomitant]
     Indication: ASTHMA
  8. SPIRIVA [Concomitant]
     Indication: ASTHMA
  9. PROVENTIL [Concomitant]
     Indication: ASTHMA
  10. LAMICTAL [Concomitant]
     Indication: BIPOLAR DISORDER
  11. LORAZEPAM [Concomitant]
     Indication: ANXIETY
  12. NEURONTIN [Concomitant]
     Indication: NEURALGIA
  13. EFFEXOR [Concomitant]
     Indication: DEPRESSION
  14. ALBUTEROL SULFATE [Concomitant]
     Indication: ASTHMA

REACTIONS (4)
  - Chronic obstructive pulmonary disease [Recovered/Resolved]
  - Asthma [Recovered/Resolved]
  - Bronchitis [Recovered/Resolved]
  - Atrial fibrillation [Not Recovered/Not Resolved]
